FAERS Safety Report 6642816-7 (Version None)
Quarter: 2010Q1

REPORT INFORMATION
  Report Type: 
  Country: None (occurrence: None)
  Receive Date: 20100319
  Receipt Date: 20100305
  Transmission Date: 20100710
  Serious: Yes (Other)
  Sender: FDA-Public Use
  Company Number: FR-ELI_LILLY_AND_COMPANY-FR201002001339

PATIENT
  Age: 83 Year
  Sex: Female
  Weight: 48 kg

DRUGS (3)
  1. FORTEO [Suspect]
     Indication: OSTEOPOROSIS
     Dosage: 20 UG, DAILY (1/D)
     Route: 058
     Dates: start: 20091127, end: 20100204
  2. DILTIAZEM HCL [Concomitant]
     Indication: HYPERTENSION
     Dosage: 1 TAB, UNK
     Route: 048
  3. DELURSAN [Concomitant]
     Indication: BILIARY CIRRHOSIS
     Dosage: UNK, UNKNOWN
     Route: 048

REACTIONS (3)
  - DELIRIUM [None]
  - HALLUCINATION, AUDITORY [None]
  - MUSCLE SPASMS [None]
